FAERS Safety Report 11493657 (Version 1)
Quarter: 2015Q3

REPORT INFORMATION
  Report Type: Report from Study
  Country: US (occurrence: US)
  Receive Date: 20150911
  Receipt Date: 20150911
  Transmission Date: 20151125
  Serious: No
  Sender: FDA-Public Use
  Company Number: PHEH2015US015879

PATIENT
  Sex: Female

DRUGS (1)
  1. GILENYA [Suspect]
     Active Substance: FINGOLIMOD HYDROCHLORIDE
     Indication: MULTIPLE SCLEROSIS
     Dosage: 0.5 MG, QD
     Route: 048
     Dates: start: 20150330

REACTIONS (21)
  - Somnolence [Unknown]
  - Fall [Unknown]
  - Sleep disorder [Not Recovered/Not Resolved]
  - Malaise [Unknown]
  - Poor quality sleep [Not Recovered/Not Resolved]
  - Musculoskeletal pain [Unknown]
  - Body temperature increased [Unknown]
  - Stress [Not Recovered/Not Resolved]
  - Pain in extremity [Unknown]
  - Chest pain [Unknown]
  - Abasia [Unknown]
  - Limb discomfort [Unknown]
  - Contusion [Not Recovered/Not Resolved]
  - Neck pain [Unknown]
  - Mood altered [Not Recovered/Not Resolved]
  - Vision blurred [Not Recovered/Not Resolved]
  - Cough [Unknown]
  - Visual impairment [Not Recovered/Not Resolved]
  - Pain [Not Recovered/Not Resolved]
  - Drug dispensing error [Unknown]
  - Memory impairment [Unknown]
